FAERS Safety Report 7357749-0 (Version None)
Quarter: 2011Q1

REPORT INFORMATION
  Report Type: 
  Country: None (occurrence: None)
  Receive Date: 20110317
  Receipt Date: 20110314
  Transmission Date: 20110831
  Serious: Yes (Other)
  Sender: FDA-Public Use
  Company Number: DE-PFIZER INC-2011009514

PATIENT

DRUGS (3)
  1. EFEROX [Concomitant]
     Dosage: 125 UG, 1X/DAY
  2. LYRICA [Suspect]
     Indication: AUTOIMMUNE THYROIDITIS
     Dosage: UNK
  3. LOSARTAN POTASSIUM AND HYDROCHLOROTHIAZIDE [Suspect]
     Dosage: UNK

REACTIONS (1)
  - BLOOD POTASSIUM INCREASED [None]
